FAERS Safety Report 11518122 (Version 1)
Quarter: 2015Q3

REPORT INFORMATION
  Report Type: Report from Study
  Country: IT (occurrence: IT)
  Receive Date: 20150917
  Receipt Date: 20150917
  Transmission Date: 20151125
  Serious: Yes (Other)
  Sender: FDA-Public Use
  Company Number: IT-TEVA-594357ISR

PATIENT
  Age: 46 Year
  Sex: Male

DRUGS (5)
  1. PREDNISONE. [Suspect]
     Active Substance: PREDNISONE
     Indication: CHEMOTHERAPY
     Dosage: 75 MILLIGRAM DAILY;
     Dates: start: 20150711, end: 20150715
  2. CICLOFOSFAMIDE [Suspect]
     Active Substance: CYCLOPHOSPHAMIDE
     Indication: CHEMOTHERAPY
     Dosage: 2000 MILLIGRAM DAILY;
     Route: 042
     Dates: start: 20150711, end: 20150711
  3. LONQUEX [Suspect]
     Active Substance: LIPEGFILGRASTIM
     Indication: NEUTROPENIA
     Dosage: 6 MILLIGRAM DAILY;
     Route: 058
     Dates: start: 20150713, end: 20150713
  4. VINCRISTINA [Suspect]
     Active Substance: VINCRISTINE
     Indication: CHEMOTHERAPY
     Dosage: 2 MILLIGRAM DAILY;
     Route: 042
     Dates: start: 20150711, end: 20150711
  5. EPIRUBICINA [Suspect]
     Active Substance: ACLARUBICIN
     Indication: CHEMOTHERAPY
     Dosage: 180 MILLIGRAM DAILY;
     Route: 042
     Dates: start: 20150711, end: 20150711

REACTIONS (1)
  - Salmonellosis [Recovered/Resolved]

NARRATIVE: CASE EVENT DATE: 20150720
